FAERS Safety Report 8982748 (Version 1)
Quarter: 2012Q4

REPORT INFORMATION
  Report Type: 
  Country: US (occurrence: US)
  Receive Date: 20121212
  Receipt Date: 20121212
  Transmission Date: 20130627
  Serious: Yes (Death)
  Sender: FDA-Public Use
  Company Number: US-ASTELLAS-1117518

PATIENT
  Sex: Male

DRUGS (7)
  1. TARCEVA [Suspect]
     Indication: LUNG NEOPLASM MALIGNANT
     Route: 065
  2. CARBOPLATIN [Concomitant]
  3. ASPIRIN [Concomitant]
  4. METOPROLOL [Concomitant]
  5. DOXAZOSIN [Concomitant]
  6. SIMVASTATIN [Concomitant]
  7. SPIRONOLACTONE [Concomitant]

REACTIONS (4)
  - Death [Fatal]
  - Diarrhoea [Unknown]
  - Fatigue [Unknown]
  - Rash [Unknown]
